FAERS Safety Report 10399440 (Version 1)
Quarter: 2014Q1

REPORT INFORMATION
  Report Type: Spontaneous
  Country: US (occurrence: None)
  Receive Date: 20130815
  Receipt Date: 20130815
  Transmission Date: 20141002
  Serious: Yes (Hospitalization, Other)
  Sender: FDA-Public Use
  Company Number: ADR-2102-01795

PATIENT
  Sex: Female

DRUGS (4)
  1. BACLOFEN 150 MCG/ ML [Suspect]
  2. FANTYL [Concomitant]
  3. BUPIVACAINE [Concomitant]
  4. DILAUDID [Concomitant]

REACTIONS (1)
  - Sensory loss [None]
